FAERS Safety Report 8708614 (Version 2)
Quarter: 2012Q4

REPORT INFORMATION
  Report Type: 
  Country: US (occurrence: US)
  Receive Date: 20120806
  Receipt Date: 20120926
  Transmission Date: 20130627
  Serious: Yes (Hospitalization)
  Sender: FDA-Public Use
  Company Number: US-ASTELLAS-2012US006525

PATIENT
  Age: 45 Year
  Sex: Female
  Weight: 88 kg

DRUGS (3)
  1. PROGRAF [Suspect]
     Indication: ACUTE LYMPHOCYTIC LEUKAEMIA
     Dosage: 2.5 mg, bid
     Route: 048
     Dates: start: 201104
  2. PROGRAF [Suspect]
     Indication: BONE MARROW TRANSPLANT
  3. PROGRAF [Suspect]
     Indication: STEM CELL TRANSPLANT

REACTIONS (6)
  - Off label use [Unknown]
  - Laboratory test abnormal [Unknown]
  - Hypoglycaemia [Unknown]
  - Pyrexia [Recovered/Resolved]
  - Asthenia [Unknown]
  - Confusional state [Recovered/Resolved]
